FAERS Safety Report 5813794-5 (Version None)
Quarter: 2008Q3

REPORT INFORMATION
  Report Type: 
  Country: None (occurrence: None)
  Receive Date: 20080717
  Receipt Date: 20080714
  Transmission Date: 20090109
  Serious: Yes (Death)
  Sender: FDA-Public Use
  Company Number: PHBS2008CN05137

PATIENT

DRUGS (2)
  1. GLEEVEC [Suspect]
     Indication: METASTASES TO LIVER
     Dosage: 400 MG, DAY
  2. GLEEVEC [Suspect]
     Dosage: 800 MG, DAY

REACTIONS (1)
  - DEATH [None]
